FAERS Safety Report 14676232 (Version 2)
Quarter: 2018Q2

REPORT INFORMATION
  Report Type: Report from Study
  Country: None (occurrence: JP)
  Receive Date: 20180323
  Receipt Date: 20180420
  Transmission Date: 20180711
  Serious: Yes (Life-Threatening, Hospitalization)
  Sender: FDA-Public Use
  Company Number: JP-BAUSCH-BL-2018-008043

PATIENT
  Age: 64 Year
  Sex: Female
  Weight: 76 kg

DRUGS (10)
  1. CHOREAZINE [Suspect]
     Active Substance: TETRABENAZINE
     Route: 048
     Dates: start: 20130531, end: 201802
  2. CHOREAZINE [Suspect]
     Active Substance: TETRABENAZINE
     Indication: HUNTINGTON^S DISEASE
     Route: 048
     Dates: start: 20130510, end: 20130516
  3. SERENACE [Concomitant]
     Active Substance: HALOPERIDOL
     Indication: PRODUCT USED FOR UNKNOWN INDICATION
     Route: 048
     Dates: start: 20060711, end: 20130509
  4. CHOREAZINE [Suspect]
     Active Substance: TETRABENAZINE
     Route: 050
     Dates: start: 20180227
  5. SERENACE [Concomitant]
     Active Substance: HALOPERIDOL
     Route: 048
     Dates: start: 20130510
  6. CHOREAZINE [Suspect]
     Active Substance: TETRABENAZINE
     Route: 048
     Dates: start: 20130517, end: 20130523
  7. MAGNESIUM OXIDE. [Concomitant]
     Active Substance: MAGNESIUM OXIDE
     Route: 065
     Dates: start: 20150301, end: 20180316
  8. MAGNESIUM OXIDE. [Concomitant]
     Active Substance: MAGNESIUM OXIDE
     Indication: CONSTIPATION
     Route: 048
     Dates: start: 20130510
  9. CHOREAZINE [Suspect]
     Active Substance: TETRABENAZINE
     Route: 048
     Dates: start: 20130524, end: 20130530
  10. SERENACE [Concomitant]
     Active Substance: HALOPERIDOL
     Route: 050
     Dates: start: 20180225

REACTIONS (2)
  - Respiratory failure [Recovering/Resolving]
  - Dysphagia [Not Recovered/Not Resolved]

NARRATIVE: CASE EVENT DATE: 20180223
